FAERS Safety Report 12993841 (Version 1)
Quarter: 2016Q4

REPORT INFORMATION
  Report Type: Spontaneous
  Country: US (occurrence: US)
  Receive Date: 20161202
  Receipt Date: 20161202
  Transmission Date: 20170207
  Serious: No
  Sender: FDA-Public Use
  Company Number: US-JNJFOC-20161007215

PATIENT
  Sex: Female
  Weight: 59.42 kg

DRUGS (2)
  1. RISPERDAL [Suspect]
     Active Substance: RISPERIDONE
     Indication: SCHIZOAFFECTIVE DISORDER
     Dosage: DOSE INCREASED
     Route: 048
     Dates: end: 2004
  2. RISPERDAL [Suspect]
     Active Substance: RISPERIDONE
     Indication: SCHIZOAFFECTIVE DISORDER
     Dosage: INTERMITTENTLY
     Route: 048
     Dates: start: 2000

REACTIONS (7)
  - Malaise [Unknown]
  - Incorrect dose administered [Unknown]
  - Blood prolactin abnormal [Unknown]
  - Depression [Unknown]
  - Inappropriate schedule of drug administration [Unknown]
  - Activities of daily living impaired [Unknown]
  - Sedation [Unknown]

NARRATIVE: CASE EVENT DATE: 2000
